FAERS Safety Report 7049577-0 (Version None)
Quarter: 2010Q4

REPORT INFORMATION
  Report Type: 
  Country: None (occurrence: None)
  Receive Date: 20101013
  Receipt Date: 20100902
  Transmission Date: 20110411
  Serious: Yes (Death, Hospitalization, Other)
  Sender: FDA-Public Use
  Company Number: UK-ACCORD-003038

PATIENT
  Age: 77 Year
  Sex: Female

DRUGS (12)
  1. IRINOTECAN HCL [Suspect]
     Indication: COLON CANCER METASTATIC
     Dosage: 200.00-MG/M2-
  2. CAPECITABINE [Suspect]
     Indication: COLON CANCER METASTATIC
  3. BEVACIZUMAB (BEVACIZUMAB) [Suspect]
     Indication: COLON CANCER METASTATIC
     Dosage: 7.50-MG/KG
  4. LISINOPRIL [Concomitant]
  5. METOPROLOL SUCCINATE [Concomitant]
  6. PANTOPRAZOLE SODIUM [Concomitant]
  7. LOVASTATIN [Concomitant]
  8. LOPERAMIDE (LOPERAMIDE) [Concomitant]
  9. PROCHLORPERAZINE MALEATE [Concomitant]
  10. ONDANSETRON [Concomitant]
  11. OXYCODONE HCL [Concomitant]
  12. ACETAMINOPHEN [Concomitant]

REACTIONS (13)
  - ABDOMINAL PAIN [None]
  - ABDOMINAL PAIN UPPER [None]
  - BONE LESION [None]
  - COLON CANCER METASTATIC [None]
  - DIARRHOEA [None]
  - DISEASE COMPLICATION [None]
  - DRUG TOXICITY [None]
  - FANCONI SYNDROME ACQUIRED [None]
  - FATIGUE [None]
  - LYMPHADENOPATHY [None]
  - METASTASIS [None]
  - NAUSEA [None]
  - VOMITING [None]
